FAERS Safety Report 18288930 (Version 5)
Quarter: 2021Q1

REPORT INFORMATION
  Report Type: Spontaneous
  Country: US (occurrence: US)
  Receive Date: 20200921
  Receipt Date: 20210111
  Transmission Date: 20210419
  Serious: No
  Sender: FDA-Public Use
  Company Number: US-PFIZER INC-2020361480

PATIENT
  Age: 55 Year
  Sex: Female

DRUGS (14)
  1. IBRANCE [Suspect]
     Active Substance: PALBOCICLIB
     Indication: BREAST CANCER FEMALE
     Dosage: 125 MG, CYCLIC (DAILY, 21 DAYS ON, 7 DAYS OFF)
     Route: 048
     Dates: start: 20200827
  2. IBRANCE [Suspect]
     Active Substance: PALBOCICLIB
     Indication: MYELODYSPLASTIC SYNDROME
     Dosage: 125 MG, CYCLIC(1 DAILY FOR 21 DAYS)
     Route: 048
  3. CALCIUM MAGNESIUM ZINC [CALCIUM;MAGNESIUM;ZINC] [Concomitant]
     Dosage: UNK
  4. CURCUMIN [Concomitant]
     Active Substance: CURCUMIN
     Dosage: UNK
  5. IBRANCE [Suspect]
     Active Substance: PALBOCICLIB
     Indication: PLEURAL EFFUSION
  6. VITAMIN B COMPLEX [Concomitant]
     Active Substance: CYANOCOBALAMIN\DEXPANTHENOL\NIACINAMIDE\PYRIDOXINE HYDROCHLORIDE\RIBOFLAVIN 5^-PHOSPHATE SODIUM\THIAMINE HYDROCHLORIDE\VITAMIN B COMPLEX
     Dosage: UNK
  7. MARSHMALLOW [ALTHAEA OFFICINALIS] [Concomitant]
     Dosage: UNK
  8. HYDROCORTISONE. [Concomitant]
     Active Substance: HYDROCORTISONE
     Dosage: UNK
  9. CHLOROPHYLL [Concomitant]
     Dosage: UNK
  10. GLUTAMINE [Concomitant]
     Active Substance: GLUTAMINE
     Dosage: UNK
  11. VITAMIN E [Concomitant]
     Active Substance: .ALPHA.-TOCOPHEROL
     Dosage: UNK
  12. IBRANCE [Suspect]
     Active Substance: PALBOCICLIB
     Indication: ANAEMIA
  13. GINGER ROOT [ZINGIBER OFFICINALE ROOT] [Concomitant]
     Dosage: UNK
  14. LICORICE ROOT [Concomitant]
     Active Substance: LICORICE
     Dosage: UNK

REACTIONS (12)
  - Intentional dose omission [Unknown]
  - Nausea [Unknown]
  - Arthralgia [Not Recovered/Not Resolved]
  - Oral pain [Unknown]
  - Fatigue [Not Recovered/Not Resolved]
  - Bone pain [Unknown]
  - Oral discomfort [Unknown]
  - Abdominal discomfort [Unknown]
  - Exposure to SARS-CoV-2 [Unknown]
  - Feeling abnormal [Unknown]
  - Diarrhoea [Unknown]
  - Pain [Unknown]
